FAERS Safety Report 19061670 (Version 3)
Quarter: 2021Q2

REPORT INFORMATION
  Report Type: Spontaneous
  Country: JP (occurrence: JP)
  Receive Date: 20210326
  Receipt Date: 20210421
  Transmission Date: 20210717
  Serious: Yes (Death, Other)
  Sender: FDA-Public Use
  Company Number: JP-AMGEN-JPNSP2021045607

PATIENT
  Age: 81 Year
  Sex: Male
  Weight: 49 kg

DRUGS (45)
  1. RANMARK [Suspect]
     Active Substance: DENOSUMAB
     Indication: METASTASES TO BONE
     Dosage: UNK
     Route: 058
  2. RANMARK [Suspect]
     Active Substance: DENOSUMAB
     Dosage: UNK
     Route: 065
  3. OXYCONTIN [Concomitant]
     Active Substance: OXYCODONE HYDROCHLORIDE
     Dosage: 10 MG, BID, AT 9 AND 21 O^CLOCK
     Route: 065
     Dates: start: 20210315, end: 20210316
  4. SENNA [Concomitant]
     Active Substance: SENNA LEAF\SENNOSIDES\SENNOSIDES A AND B
     Dosage: 80 MG, AS NEEDED, AT THE CONSTIPATION
     Route: 065
  5. LASIX [Concomitant]
     Active Substance: FUROSEMIDE
     Dosage: 20 MILLIGRAM, QD
     Route: 065
     Dates: end: 20210301
  6. NOVAMIN [PROCHLORPERAZINE MALEATE] [Concomitant]
     Active Substance: PROCHLORPERAZINE MALEATE
     Dosage: 5 MG, TID, AFTER EVERY MEAL
     Route: 065
     Dates: start: 20210315, end: 20210317
  7. NOVAMIN [PROCHLORPERAZINE MALEATE] [Concomitant]
     Active Substance: PROCHLORPERAZINE MALEATE
     Dosage: 5 UNK
     Route: 065
     Dates: start: 20210315, end: 20210317
  8. OXINORM [OXYCODONE HYDROCHLORIDE] [Concomitant]
     Active Substance: OXYCODONE HYDROCHLORIDE
     Dosage: 10 MG, AS NEEDED, AT THE PAIN
     Route: 065
     Dates: start: 20210315
  9. OXINORM [OXYCODONE HYDROCHLORIDE] [Concomitant]
     Active Substance: OXYCODONE HYDROCHLORIDE
     Dosage: 10 UNK
     Route: 065
     Dates: start: 20210315, end: 20210316
  10. OXINORM [OXYCODONE HYDROCHLORIDE] [Concomitant]
     Active Substance: OXYCODONE HYDROCHLORIDE
     Dosage: 10 UNK  *SINGLE *SINGLE
     Route: 065
     Dates: start: 20210315
  11. SERENACE [Concomitant]
     Active Substance: HALOPERIDOL
     Dosage: 0.75 MG, AS NEEDED, AT THE INSOMNIA
     Route: 065
     Dates: start: 20210319, end: 20210322
  12. RANMARK [Suspect]
     Active Substance: DENOSUMAB
     Indication: GASTRIC CANCER
     Dosage: 120 MG, ONCE EVERY 4 WK
     Route: 058
     Dates: start: 20210315
  13. RANMARK [Suspect]
     Active Substance: DENOSUMAB
     Dosage: 120 UNK
     Route: 058
     Dates: start: 20210315
  14. LOXOPROFEN NA [Concomitant]
     Active Substance: LOXOPROFEN SODIUM
     Dosage: 60 MG, AS NEEDED, AT THE PAIN
     Route: 065
     Dates: end: 20210320
  15. AMLODIPINE [Concomitant]
     Active Substance: AMLODIPINE BESYLATE
     Dosage: 5 MG, QD, AFTER BREAKFAST
     Route: 065
     Dates: end: 20210301
  16. LASIX [Concomitant]
     Active Substance: FUROSEMIDE
     Dosage: 20 MG, QD, AFTER BREAKFAST
     Route: 065
     Dates: end: 20210301
  17. LASIX [Concomitant]
     Active Substance: FUROSEMIDE
     Dosage: 20 MG, QD, AFTER BREAKFAST
     Route: 065
     Dates: start: 20210315, end: 20210322
  18. LASIX [Concomitant]
     Active Substance: FUROSEMIDE
     Dosage: 20 MILLIGRAM, QD
     Route: 065
     Dates: start: 20210315, end: 20210322
  19. LASIX [Concomitant]
     Active Substance: FUROSEMIDE
     Dosage: 20 MILLIGRAM, QD
     Route: 065
     Dates: start: 20210322, end: 20210322
  20. NOVAMIN [PROCHLORPERAZINE MALEATE] [Concomitant]
     Active Substance: PROCHLORPERAZINE MALEATE
     Dosage: 5 MG, TID, AFTER EVERY MEAL
     Route: 065
     Dates: end: 20210301
  21. BROTIZOLAM [Concomitant]
     Active Substance: BROTIZOLAM
     Dosage: 0.25 MG, QD, BEFORE BEDTIME AT THE INSOMNIA
     Route: 065
     Dates: start: 20210316, end: 20210318
  22. MUCODYNE [Concomitant]
     Active Substance: CARBOCYSTEINE
     Dosage: 500 MG, TID, AFTER EVERY MEAL
     Route: 065
     Dates: start: 20210320, end: 20210321
  23. MACTASE [DEHYDROCHOLIC ACID;DIASTASE;MOLSIN;OX BILE EXTRACT;PANCREATIN [Concomitant]
     Dosage: 1 DF, TID, AFTER EVERY MEAL
     Route: 065
     Dates: end: 20210301
  24. CAMOSTAT MESILATE [Concomitant]
     Active Substance: CAMOSTAT MESYLATE
     Dosage: 100 MG, TID, AFTER EVERY MEAL
     Route: 065
     Dates: end: 20210301
  25. TAKECAB [Concomitant]
     Active Substance: VONOPRAZAN FUMARATE
     Dosage: 20 MG, QD, AFTER BREAKFAST
     Route: 065
     Dates: start: 20210315, end: 20210323
  26. OXINORM [OXYCODONE HYDROCHLORIDE] [Concomitant]
     Active Substance: OXYCODONE HYDROCHLORIDE
     Dosage: 40 UNK
     Route: 065
     Dates: start: 20210317, end: 20210321
  27. ENSURE [NUTRIENTS NOS] [Concomitant]
     Dosage: 1 UNK
     Route: 065
     Dates: end: 20210305
  28. FENTOS [Concomitant]
     Active Substance: FENTANYL
     Dosage: UNK
     Route: 065
     Dates: start: 20210322, end: 20210324
  29. MIYA?BM [Concomitant]
     Active Substance: CLOSTRIDIUM BUTYRICUM SPORES STRAIN M-55
     Dosage: 1 DF, TID, AFTER EVERY MEAL
     Route: 065
     Dates: end: 20210301
  30. TAKECAB [Concomitant]
     Active Substance: VONOPRAZAN FUMARATE
     Dosage: 20 MG, QD, AFTER BREAKFAST
     Route: 065
     Dates: end: 20210301
  31. LASIX [Concomitant]
     Active Substance: FUROSEMIDE
     Dosage: 20 MG, QD, AFTER LUNCH
     Route: 065
     Dates: start: 20210322, end: 20210322
  32. LASIX [Concomitant]
     Active Substance: FUROSEMIDE
     Dosage: 40 MG, QD, AFTER BREAKFAST
     Route: 065
     Dates: start: 20210323, end: 20210323
  33. LENDORMIN D [Concomitant]
     Active Substance: BROTIZOLAM
     Dosage: 0.25 MILLIGRAM, QD
     Route: 065
     Dates: start: 20210316, end: 20210318
  34. ENSURE [NUTRIENTS NOS] [Concomitant]
     Dosage: 1 DF, BID
     Route: 065
     Dates: end: 20210305
  35. SENNA [Concomitant]
     Active Substance: SENNA LEAF\SENNOSIDES\SENNOSIDES A AND B
     Dosage: 80 MG, AS NEEDED, AT THE CONSTIPATION
     Route: 065
  36. LASIX [Concomitant]
     Active Substance: FUROSEMIDE
     Dosage: 40 MILLIGRAM, QD
     Route: 065
     Dates: start: 20210323, end: 20210323
  37. LENDORMIN D [Concomitant]
     Active Substance: BROTIZOLAM
     Dosage: 0.25 MG, QD, BEFORE BEDTIME AT THE INSOMNIA
     Route: 065
     Dates: end: 20210302
  38. OXYCONTIN [Concomitant]
     Active Substance: OXYCODONE HYDROCHLORIDE
     Dosage: 10 MG, BID, AT 9 AND 21 O^CLOCK
     Route: 065
     Dates: start: 20210315, end: 20210316
  39. NOVAMIN [PROCHLORPERAZINE MALEATE] [Concomitant]
     Active Substance: PROCHLORPERAZINE MALEATE
     Dosage: 5 UNK
     Route: 065
     Dates: end: 20210301
  40. OXINORM [OXYCODONE HYDROCHLORIDE] [Concomitant]
     Active Substance: OXYCODONE HYDROCHLORIDE
     Dosage: 2.5 MG, AS NEEDED, AT THE PAIN
     Route: 065
     Dates: end: 20210303
  41. OXINORM [OXYCODONE HYDROCHLORIDE] [Concomitant]
     Active Substance: OXYCODONE HYDROCHLORIDE
     Dosage: 10 MILLIGRAM
     Route: 065
     Dates: start: 20210315, end: 20210316
  42. OXYCONTIN [Concomitant]
     Active Substance: OXYCODONE HYDROCHLORIDE
     Dosage: 40 MG, BID, AT 9 AND 21 O^CLOCK
     Route: 065
     Dates: start: 20210317, end: 20210321
  43. RANMARK [Suspect]
     Active Substance: DENOSUMAB
     Dosage: UNK
     Route: 058
  44. OXINORM [OXYCODONE HYDROCHLORIDE] [Concomitant]
     Active Substance: OXYCODONE HYDROCHLORIDE
     Dosage: 2.5 MILLIGRAM
     Route: 065
     Dates: end: 20210303
  45. SERENACE [Concomitant]
     Active Substance: HALOPERIDOL
     Dosage: 0.75 MG, QD, BEFORE BEDTIME
     Route: 065
     Dates: start: 20210322, end: 20210324

REACTIONS (4)
  - Blood potassium increased [Not Recovered/Not Resolved]
  - Renal impairment [Not Recovered/Not Resolved]
  - Death [Fatal]
  - Hypocalcaemia [Not Recovered/Not Resolved]

NARRATIVE: CASE EVENT DATE: 20210322
